FAERS Safety Report 6303663-9 (Version None)
Quarter: 2009Q3

REPORT INFORMATION
  Report Type: 
  Country: None (occurrence: None)
  Receive Date: 20090807
  Receipt Date: 20090807
  Transmission Date: 20100115
  Serious: Yes (Other)
  Sender: FDA-Public Use
  Company Number: None

PATIENT
  Age: 42 Year
  Sex: Female
  Weight: 68.0396 kg

DRUGS (1)
  1. ASTEPRO [Suspect]
     Indication: SINUSITIS
     Dosage: 1 SPRAY 2X PER DAY NASAL
     Route: 045
     Dates: start: 20090801, end: 20090801

REACTIONS (7)
  - AGEUSIA [None]
  - ANOSMIA [None]
  - ASTHMA [None]
  - DISEASE RECURRENCE [None]
  - HYPOAESTHESIA [None]
  - SINUS HEADACHE [None]
  - UPPER AIRWAY OBSTRUCTION [None]
